FAERS Safety Report 10434054 (Version 2)
Quarter: 2014Q3

REPORT INFORMATION
  Report Type: Not Available
  Country: FR (occurrence: FR)
  Receive Date: 20140905
  Receipt Date: 20140905
  Transmission Date: 20150326
  Serious: Yes (Hospitalization)
  Sender: FDA-Public Use
  Company Number: FR-MUNDIPHARMA DS AND PHARMACOVIGILANCE-GBR-2014-0020531

PATIENT
  Age: 54 Year
  Sex: Female

DRUGS (10)
  1. SEVREDOL 10 MG, COMPRIME PELLICULE SECABLE [Suspect]
     Active Substance: MORPHINE
     Dosage: UNK
  2. SEVREDOL 10 MG, COMPRIME PELLICULE SECABLE [Suspect]
     Active Substance: MORPHINE
     Indication: PRODUCT USED FOR UNKNOWN INDICATION
     Dosage: UNK UNK, SEE TEXT
     Route: 048
     Dates: start: 20140703, end: 20140704
  3. ACUPAN [Suspect]
     Active Substance: NEFOPAM HYDROCHLORIDE
     Indication: PRODUCT USED FOR UNKNOWN INDICATION
     Dosage: UNK, SEE TEXT
     Route: 048
     Dates: start: 20140703, end: 20140704
  4. XANAX [Suspect]
     Active Substance: ALPRAZOLAM
     Indication: PRODUCT USED FOR UNKNOWN INDICATION
     Dosage: UNK UNK, SEE TEXT
     Route: 048
     Dates: start: 20140703, end: 20140704
  5. CORTANCYL [Suspect]
     Active Substance: PREDNISONE
     Dosage: UNK
     Route: 048
  6. CORTANCYL [Suspect]
     Active Substance: PREDNISONE
     Indication: PRODUCT USED FOR UNKNOWN INDICATION
     Dosage: UNK UNK, SEE TEXT
     Route: 048
     Dates: start: 20140703, end: 20140704
  7. DOLIPRANE [Suspect]
     Active Substance: ACETAMINOPHEN
     Dosage: UNK
     Route: 048
  8. XANAX [Suspect]
     Active Substance: ALPRAZOLAM
     Dosage: UNK
     Route: 048
  9. DOLIPRANE [Suspect]
     Active Substance: ACETAMINOPHEN
     Indication: PRODUCT USED FOR UNKNOWN INDICATION
     Dosage: UNK UNK, SEE TEXT
     Route: 048
     Dates: start: 20140703, end: 20140704
  10. ACUPAN [Suspect]
     Active Substance: NEFOPAM HYDROCHLORIDE
     Dosage: UNK
     Route: 048

REACTIONS (16)
  - Disseminated intravascular coagulation [Recovered/Resolved]
  - Respiratory failure [Recovered/Resolved]
  - Shock [None]
  - Aspartate aminotransferase increased [None]
  - Renal failure acute [Recovering/Resolving]
  - Hepatocellular injury [None]
  - Metabolic acidosis [None]
  - Lung disorder [None]
  - Alanine aminotransferase increased [None]
  - Cholestasis [None]
  - Left ventricular dysfunction [None]
  - Poisoning deliberate [Recovering/Resolving]
  - Atelectasis [None]
  - Coma [Recovered/Resolved]
  - Hyperlactacidaemia [None]
  - Left ventricular hypertrophy [None]

NARRATIVE: CASE EVENT DATE: 20140704
